FAERS Safety Report 25648040 (Version 1)
Quarter: 2025Q3

REPORT INFORMATION
  Report Type: Spontaneous
  Country: IL (occurrence: IL)
  Receive Date: 20250806
  Receipt Date: 20250806
  Transmission Date: 20251020
  Serious: Yes (Other)
  Sender: STRIDES
  Company Number: IL-STRIDES ARCOLAB LIMITED-2025SP009600

PATIENT
  Age: 46 Year
  Sex: Male

DRUGS (13)
  1. PREDNISOLONE [Suspect]
     Active Substance: PREDNISOLONE
     Indication: Retinal melanoma
     Route: 065
  2. PREDNISOLONE [Suspect]
     Active Substance: PREDNISOLONE
     Indication: Retinopathy
     Route: 065
  3. PREDNISOLONE [Suspect]
     Active Substance: PREDNISOLONE
     Route: 065
  4. PREDNISOLONE [Suspect]
     Active Substance: PREDNISOLONE
     Route: 065
  5. DABRAFENIB [Concomitant]
     Active Substance: DABRAFENIB
     Indication: Retinal melanoma
     Route: 065
  6. DABRAFENIB [Concomitant]
     Active Substance: DABRAFENIB
     Indication: Retinopathy
  7. TRAMETINIB [Concomitant]
     Active Substance: TRAMETINIB
     Indication: Retinal melanoma
     Route: 065
  8. TRAMETINIB [Concomitant]
     Active Substance: TRAMETINIB
     Indication: Retinopathy
  9. IMURAN [Concomitant]
     Active Substance: AZATHIOPRINE
     Indication: Retinal melanoma
     Route: 065
  10. IMURAN [Concomitant]
     Active Substance: AZATHIOPRINE
     Indication: Retinopathy
     Route: 065
  11. IMURAN [Concomitant]
     Active Substance: AZATHIOPRINE
     Route: 065
  12. Immunoglobulin [Concomitant]
     Indication: Retinal melanoma
     Route: 042
  13. Immunoglobulin [Concomitant]
     Indication: Retinopathy

REACTIONS (3)
  - Night blindness [Recovering/Resolving]
  - Condition aggravated [Recovering/Resolving]
  - Off label use [Unknown]
